FAERS Safety Report 7429859-0 (Version None)
Quarter: 2011Q2

REPORT INFORMATION
  Report Type: 
  Country: None (occurrence: None)
  Receive Date: 20110421
  Receipt Date: 20091126
  Transmission Date: 20111010
  Serious: Yes (Death, Hospitalization, Other)
  Sender: FDA-Public Use
  Company Number: US-BAYER-200940866NA

PATIENT
  Age: 75 Year
  Sex: Male
  Weight: 59 kg

DRUGS (13)
  1. ALBUMIN (HUMAN) [Concomitant]
     Dosage: 50ML
     Dates: start: 20050902
  2. TRASYLOL [Suspect]
     Indication: CORONARY ARTERY BYPASS
     Dosage: 200 ML BOLUS, THEN 50 ML/HR INFUSION
     Route: 042
     Dates: start: 20050902, end: 20050902
  3. NITROGLYCERIN [Concomitant]
     Dosage: 0.1 MICROGRAM/KG/MIN
     Route: 042
     Dates: start: 20050902
  4. ADALAT CC [Concomitant]
     Dosage: 30 MILLIGRAM
     Route: 048
     Dates: end: 20050801
  5. PLATELETS [Concomitant]
     Dosage: 1 UNIT INFUSION
     Dates: start: 20050902
  6. BLOOD AND RELATED PRODUCTS [Concomitant]
     Dosage: 750CC
  7. SUFENTA PRESERVATIVE FREE [Concomitant]
     Dosage: 1-2 MICROGRAM/KG/MIN
     Route: 042
     Dates: start: 20050902
  8. VERSED [Concomitant]
     Dosage: 2-5 MILLIGRAM/HR
     Route: 042
     Dates: start: 20050902
  9. ANCEF [Concomitant]
     Dosage: 1 GM
     Route: 042
     Dates: start: 20050902
  10. LISINOPRIL [Concomitant]
     Dosage: 10 MILLIGRAM
     Route: 048
     Dates: start: 20050801
  11. AMIODARONE [Concomitant]
     Dosage: DRIP
     Route: 042
     Dates: start: 20050904, end: 20050904
  12. RED BLOOD CELLS [Concomitant]
     Dosage: 2 PACKS
     Route: 042
     Dates: start: 20050902
  13. PHENYLEPHRIN [Concomitant]
     Dosage: INFUSION
     Route: 042

REACTIONS (11)
  - ANXIETY [None]
  - DEATH [None]
  - UNEVALUABLE EVENT [None]
  - FEAR [None]
  - RENAL IMPAIRMENT [None]
  - RENAL FAILURE [None]
  - STRESS [None]
  - RENAL INJURY [None]
  - EMOTIONAL DISTRESS [None]
  - PAIN [None]
  - INJURY [None]
